FAERS Safety Report 24133650 (Version 1)
Quarter: 2024Q3

REPORT INFORMATION
  Report Type: Spontaneous
  Country: US (occurrence: US)
  Receive Date: 20240724
  Receipt Date: 20240724
  Transmission Date: 20241016
  Serious: Yes (Life-Threatening, Hospitalization)
  Sender: PERRIGO
  Company Number: US-MLMSERVICE-20240712-PI130708-00029-1

PATIENT
  Age: 44 Year
  Sex: Male

DRUGS (1)
  1. ACETAMINOPHEN [Suspect]
     Active Substance: ACETAMINOPHEN
     Indication: Product used for unknown indication
     Dosage: OVER THE PAST 1?2 DAYS
     Route: 048

REACTIONS (3)
  - Overdose [Recovering/Resolving]
  - Oliguria [Recovering/Resolving]
  - Acute hepatic failure [Recovering/Resolving]
